FAERS Safety Report 5483568-6 (Version None)
Quarter: 2007Q4

REPORT INFORMATION
  Report Type: 
  Country: None (occurrence: None)
  Receive Date: 20071009
  Receipt Date: 20070930
  Transmission Date: 20080405
  Serious: Yes (Hospitalization, Other)
  Sender: FDA-Public Use
  Company Number: 2007SP019833

PATIENT
  Age: 44 Year
  Sex: Female

DRUGS (7)
  1. PEG-INTRON [Suspect]
     Indication: HEPATITIS C
     Dosage: SC
     Route: 058
     Dates: start: 20070424
  2. RIBAVIRIN [Suspect]
     Indication: HEPATITIS C
     Dosage: PO
     Route: 048
     Dates: start: 20070424
  3. METFORMIN HCL [Concomitant]
  4. HYDROCHLOROTHIAZIDE [Concomitant]
  5. OXYCONTIN [Concomitant]
  6. ATIVAN [Concomitant]
  7. IBUPROFEN [Concomitant]

REACTIONS (7)
  - CONDITION AGGRAVATED [None]
  - FALL [None]
  - HAEMOGLOBIN DECREASED [None]
  - LOWER LIMB FRACTURE [None]
  - OSTEOPOROSIS [None]
  - RECTAL HAEMORRHAGE [None]
  - VOMITING [None]
